FAERS Safety Report 10077693 (Version 1)
Quarter: 2014Q2

REPORT INFORMATION
  Report Type: Report from Study
  Country: VE (occurrence: VE)
  Receive Date: 20140414
  Receipt Date: 20140414
  Transmission Date: 20141212
  Serious: Yes (Other)
  Sender: FDA-Public Use
  Company Number: VE-ABBVIE-14P-178-1224144-00

PATIENT
  Sex: Female
  Weight: 60 kg

DRUGS (4)
  1. HUMIRA [Suspect]
     Indication: RHEUMATOID ARTHRITIS
     Route: 058
     Dates: start: 201310, end: 201312
  2. FOLIC ACID [Concomitant]
     Indication: PREGNANCY
     Route: 048
     Dates: start: 201312
  3. CALCIUM [Concomitant]
     Indication: PREGNANCY
     Route: 048
     Dates: start: 201312
  4. CENTRUM [Concomitant]
     Indication: PREGNANCY
     Route: 048
     Dates: start: 201312

REACTIONS (1)
  - Haemoglobin decreased [Unknown]
